FAERS Safety Report 8593089-X (Version None)
Quarter: 2012Q3

REPORT INFORMATION
  Report Type: 
  Country: None (occurrence: None)
  Receive Date: 20120814
  Receipt Date: 20120810
  Transmission Date: 20120928
  Serious: Yes (Death)
  Sender: FDA-Public Use
  Company Number: US-ASTRAZENECA-2012SE56689

PATIENT
  Age: 73 Year
  Sex: Female

DRUGS (2)
  1. ANASTROZOLE [Suspect]
     Indication: BREAST CANCER METASTATIC
     Route: 048
  2. FULVESTRANT [Suspect]
     Indication: BREAST CANCER METASTATIC
     Dosage: 500MG ON DAY1, AND 250MG ON DAY 14 AND 28, AND THEREAFTER EVERY 28 DAYS
     Route: 030

REACTIONS (1)
  - EMBOLISM [None]
